FAERS Safety Report 15583262 (Version 1)
Quarter: 2018Q4

REPORT INFORMATION
  Report Type: Spontaneous
  Country: US (occurrence: US)
  Receive Date: 20181103
  Receipt Date: 20181103
  Transmission Date: 20190205
  Serious: Yes (Other)
  Sender: FDA-Public Use
  Company Number: US-TEVA-2018-US-971269

PATIENT
  Sex: Female

DRUGS (4)
  1. SODIUM CHLORIDE 0.9% [Suspect]
     Active Substance: SODIUM CHLORIDE
     Route: 064
  2. PENICILLIN G [Suspect]
     Active Substance: PENICILLIN G
     Route: 042
  3. FENTANYL. [Suspect]
     Active Substance: FENTANYL
     Indication: PRODUCT USED FOR UNKNOWN INDICATION
     Route: 042
  4. BUPIVACAINE. [Suspect]
     Active Substance: BUPIVACAINE
     Route: 042

REACTIONS (7)
  - Caesarean section [Unknown]
  - Incorrect route of product administration [Unknown]
  - Respiratory arrest [Unknown]
  - Maternal exposure during delivery [Unknown]
  - Wrong product administered [Unknown]
  - Seizure [Unknown]
  - Product label confusion [Unknown]
